FAERS Safety Report 12530116 (Version 1)
Quarter: 2016Q3

REPORT INFORMATION
  Report Type: Spontaneous
  Country: JP (occurrence: JP)
  Receive Date: 20160706
  Receipt Date: 20160706
  Transmission Date: 20161109
  Serious: Yes (Hospitalization)
  Sender: FDA-Public Use
  Company Number: PHHY2016JP090027

PATIENT
  Age: 10 Month
  Sex: Female
  Weight: 6.6 kg

DRUGS (2)
  1. CARBAMAZEPINE. [Suspect]
     Active Substance: CARBAMAZEPINE
     Indication: SEIZURE
     Dosage: 9 MG/KG, QD
     Route: 065
  2. MIDAZOLAM [Suspect]
     Active Substance: MIDAZOLAM\MIDAZOLAM HYDROCHLORIDE
     Indication: SEIZURE
     Dosage: 0.3 MG/KG, QH
     Route: 041

REACTIONS (8)
  - Gaze palsy [Unknown]
  - Cyanosis [Unknown]
  - Seizure [Recovered/Resolved]
  - Status epilepticus [Unknown]
  - Tardive dyskinesia [Unknown]
  - Clonus [Unknown]
  - Blepharospasm [Unknown]
  - Hypotonia [Unknown]
